FAERS Safety Report 8580174-1 (Version None)
Quarter: 2012Q3

REPORT INFORMATION
  Report Type: 
  Country: None (occurrence: None)
  Receive Date: 20120808
  Receipt Date: 20120725
  Transmission Date: 20120928
  Serious: Yes (Hospitalization)
  Sender: FDA-Public Use
  Company Number: US-MYLANLABS-2012S1015361

PATIENT
  Age: 9 Year
  Sex: Male

DRUGS (4)
  1. CARBIDOPA AND LEVODOPA [Suspect]
     Indication: DYSTONIA
     Dosage: 1 DF = 10MG LEVODOPA/100MG CARBIDOPA
     Route: 065
  2. BACLOFEN [Concomitant]
     Indication: MUSCLE SPASTICITY
     Route: 048
  3. CARBIDOPA AND LEVODOPA [Suspect]
     Route: 065
  4. CLONAZEPAM [Concomitant]
     Indication: MUSCLE SPASTICITY
     Route: 048

REACTIONS (4)
  - ILEUS [None]
  - NEUROLEPTIC MALIGNANT SYNDROME [None]
  - TRANSAMINASES INCREASED [None]
  - AGITATION [None]
